FAERS Safety Report 9603692 (Version 1)
Quarter: 2013Q4

REPORT INFORMATION
  Report Type: Spontaneous
  Country: KR (occurrence: KR)
  Receive Date: 20131007
  Receipt Date: 20131007
  Transmission Date: 20140711
  Serious: Yes (Other)
  Sender: FDA-Public Use
  Company Number: KR-009507513-1309KOR014283

PATIENT
  Sex: Female

DRUGS (2)
  1. MERCILON [Suspect]
     Indication: CONTRACEPTION
     Route: 048
  2. MERCILON [Suspect]
     Indication: OVULATION PAIN

REACTIONS (1)
  - Thyroid cancer [Unknown]
